FAERS Safety Report 20357514 (Version 10)
Quarter: 2022Q2

REPORT INFORMATION
  Report Type: Report from Study
  Country: CN (occurrence: None)
  Receive Date: 20220120
  Receipt Date: 20220621
  Transmission Date: 20220721
  Serious: Yes (Death, Hospitalization)
  Sender: FDA-Public Use
  Company Number: CN-ROCHE-3003445

PATIENT
  Age: 57 Year
  Sex: Female
  Weight: 51 kg

DRUGS (24)
  1. TIRAGOLUMAB [Suspect]
     Active Substance: TIRAGOLUMAB
     Indication: Oesophageal squamous cell carcinoma
     Dosage: DOSE LAST STUDY DRUG ADMIN PRIOR SAE/AE: 600 MG?START DATE OF MOST RECENT DOSE OF STUDY DRUG?PRIOR T
     Route: 042
     Dates: start: 20210618
  2. ATEZOLIZUMAB [Suspect]
     Active Substance: ATEZOLIZUMAB
     Indication: Oesophageal squamous cell carcinoma
     Dosage: DOSE LAST STUDY DRUG ADMIN PRIOR SAE/AE: 1200 MG?START DATE OF MOST RECENT DOSE OF STUDY DRUG PRIOR
     Route: 041
     Dates: start: 20210618
  3. OXYCODONE AND ACETAMINOPHEN [Concomitant]
     Active Substance: ACETAMINOPHEN\OXYCODONE HYDROCHLORIDE
     Indication: Oropharyngeal pain
     Route: 048
     Dates: start: 20210602
  4. FERROUS SUCCINATE [Concomitant]
     Active Substance: FERROUS SUCCINATE
     Indication: Anaemia
     Route: 048
     Dates: start: 20210607
  5. TRIMEBUTINE MALEATE [Concomitant]
     Active Substance: TRIMEBUTINE MALEATE
     Indication: Abdominal pain upper
     Route: 048
     Dates: start: 20210611
  6. ILAPRAZOLE [Concomitant]
     Active Substance: ILAPRAZOLE
     Indication: Vomiting
     Dates: start: 20210903
  7. IRON [Concomitant]
     Active Substance: IRON
     Indication: Anaemia
     Dates: start: 20211020
  8. THYMALFASIN [Concomitant]
     Active Substance: THYMALFASIN
     Indication: Interstitial lung disease
     Dosage: NO
     Dates: start: 20211209, end: 20211214
  9. AMINO ACIDS, SOURCE UNSPECIFIED [Concomitant]
     Active Substance: AMINO ACIDS, SOURCE UNSPECIFIED
     Indication: Interstitial lung disease
     Dates: start: 20211209, end: 20211214
  10. MOXALACTAM DISODIUM [Concomitant]
     Active Substance: MOXALACTAM DISODIUM
     Indication: Interstitial lung disease
     Dates: start: 20211209, end: 20211214
  11. OMEPRAZOLE SODIUM [Concomitant]
     Active Substance: OMEPRAZOLE SODIUM
     Indication: Interstitial lung disease
     Dates: start: 20211209, end: 20211214
  12. SODIUM CHLORIDE [Concomitant]
     Active Substance: SODIUM CHLORIDE
     Indication: Pneumonia
     Route: 042
     Dates: start: 20211209, end: 20211214
  13. SODIUM CHLORIDE [Concomitant]
     Active Substance: SODIUM CHLORIDE
     Route: 042
     Dates: start: 20211209, end: 20211214
  14. SODIUM CHLORIDE [Concomitant]
     Active Substance: SODIUM CHLORIDE
     Route: 042
     Dates: start: 20211209, end: 20211214
  15. PREDNISONE ACETATE [Concomitant]
     Active Substance: PREDNISONE ACETATE
     Indication: Interstitial lung disease
     Route: 048
     Dates: start: 20211216, end: 20211227
  16. PREDNISONE ACETATE [Concomitant]
     Active Substance: PREDNISONE ACETATE
     Route: 048
     Dates: start: 20211228, end: 20220103
  17. PREDNISONE ACETATE [Concomitant]
     Active Substance: PREDNISONE ACETATE
     Route: 048
     Dates: start: 20220104, end: 20220108
  18. PREDNISONE ACETATE [Concomitant]
     Active Substance: PREDNISONE ACETATE
     Route: 048
     Dates: start: 20220109, end: 20220115
  19. PREDNISONE ACETATE [Concomitant]
     Active Substance: PREDNISONE ACETATE
     Route: 048
     Dates: start: 20220116, end: 20220122
  20. PREDNISONE ACETATE [Concomitant]
     Active Substance: PREDNISONE ACETATE
     Route: 048
     Dates: start: 20220123, end: 20220129
  21. PREDNISONE ACETATE [Concomitant]
     Active Substance: PREDNISONE ACETATE
     Route: 048
     Dates: start: 20220130, end: 20220205
  22. PREDNISONE ACETATE [Concomitant]
     Active Substance: PREDNISONE ACETATE
     Route: 048
     Dates: start: 20220206, end: 20220212
  23. PREDNISONE ACETATE [Concomitant]
     Active Substance: PREDNISONE ACETATE
     Route: 048
     Dates: start: 20220213, end: 20220218
  24. PREDNISONE ACETATE [Concomitant]
     Active Substance: PREDNISONE ACETATE
     Route: 048
     Dates: start: 20220219

REACTIONS (1)
  - Pneumonia [Fatal]

NARRATIVE: CASE EVENT DATE: 20220108
